FAERS Safety Report 5302284-4 (Version None)
Quarter: 2007Q1

REPORT INFORMATION
  Report Type: 
  Country: None (occurrence: None)
  Receive Date: 20070201
  Receipt Date: 20061215
  Transmission Date: 20070707
  Serious: No
  Sender: FDA-Public Use
  Company Number: 2006PV027010

PATIENT
  Age: 68 Year
  Sex: Female
  Weight: 77.1115 kg

DRUGS (21)
  1. BYETTA [Suspect]
     Indication: DIABETES MELLITUS NON-INSULIN-DEPENDENT
     Dosage: 5 MCG;BID;SC
     Route: 058
     Dates: start: 20061205, end: 20061222
  2. ACTOS [Concomitant]
  3. HUMALOG [Concomitant]
  4. HYZAAR [Concomitant]
  5. TOPROL-XL [Concomitant]
  6. PLAVIX [Concomitant]
  7. ADALAT [Concomitant]
  8. LASIX [Concomitant]
  9. NEXIUM [Concomitant]
  10. K-DUR 10 [Concomitant]
  11. ALLEGRA [Concomitant]
  12. SINGULAIR [Concomitant]
  13. VYTORIN [Concomitant]
  14. FOSAMAX [Concomitant]
  15. DOXEPIN HCL [Concomitant]
  16. AMBIEN CR [Concomitant]
  17. AMBIEN [Concomitant]
  18. ATIVAN [Concomitant]
  19. CALCIUM CHLORIDE [Concomitant]
  20. VITAMIN E [Concomitant]
  21. GINKO [Concomitant]

REACTIONS (7)
  - ANXIETY [None]
  - CONDITION AGGRAVATED [None]
  - FEELING JITTERY [None]
  - INSOMNIA [None]
  - NERVOUSNESS [None]
  - VOMITING [None]
  - WEIGHT DECREASED [None]
